FAERS Safety Report 15550449 (Version 4)
Quarter: 2019Q1

REPORT INFORMATION
  Report Type: Other
  Country: PL (occurrence: PL)
  Receive Date: 20181025
  Receipt Date: 20190103
  Transmission Date: 20190417
  Serious: Yes (Other)
  Sender: FDA-Public Use
  Company Number: PL-APOTEX-2018AP023139

PATIENT
  Age: 57 Year
  Sex: Male
  Weight: 86 kg

DRUGS (26)
  1. TRAZODONE [Concomitant]
     Active Substance: TRAZODONE HYDROCHLORIDE
     Dosage: 100 MG, UNK THREE HOURS BEFORE BED
     Route: 065
  2. TRAZODONE [Concomitant]
     Active Substance: TRAZODONE HYDROCHLORIDE
     Dosage: 75 MG, QD THREE HOURS BEFORE PLANNED BEDTIME
     Route: 065
  3. ZOLPIDEM [Suspect]
     Active Substance: ZOLPIDEM\ZOLPIDEM TARTRATE
     Indication: INSOMNIA
     Dosage: 10 MG, EVERY 10 DAY
     Route: 048
     Dates: start: 20171122, end: 20171124
  4. MIANSERIN [Suspect]
     Active Substance: MIANSERIN
     Dosage: 20 MG, QD
     Route: 065
  5. METFORMIN [Concomitant]
     Active Substance: METFORMIN HYDROCHLORIDE
     Indication: TYPE 2 DIABETES MELLITUS
     Dosage: UNK
     Route: 065
  6. TRAZODONE [Concomitant]
     Active Substance: TRAZODONE HYDROCHLORIDE
     Indication: PRODUCT USED FOR UNKNOWN INDICATION
     Dosage: UNK
     Route: 065
  7. MIANSERINE [Suspect]
     Active Substance: MIANSERIN HYDROCHLORIDE
     Dosage: 20 MG,QD HALF AN HOUR BEFORE BED
     Route: 065
  8. ZOLPIDEM [Suspect]
     Active Substance: ZOLPIDEM\ZOLPIDEM TARTRATE
     Indication: SLEEP DISORDER
     Dosage: 10 MG, QD, USED BEFORE GOING SLEEP
     Route: 065
  9. METFORMIN [Concomitant]
     Active Substance: METFORMIN HYDROCHLORIDE
     Indication: INSOMNIA
     Dosage: UNK UNK,UNK
     Route: 065
  10. SIMVASTATIN. [Concomitant]
     Active Substance: SIMVASTATIN
     Indication: PRODUCT USED FOR UNKNOWN INDICATION
     Route: 065
  11. PARACETAMOL [Concomitant]
     Active Substance: ACETAMINOPHEN
     Indication: PRODUCT USED FOR UNKNOWN INDICATION
     Route: 065
  12. FLUOXETINE [Suspect]
     Active Substance: FLUOXETINE HYDROCHLORIDE
     Dosage: 2 X 20 MG IN THE MORNING AND IN THE EVENING
     Route: 065
  13. DIAZEPAM. [Suspect]
     Active Substance: DIAZEPAM
     Indication: INITIAL INSOMNIA
     Dosage: 10 MG, QD, 10 MG, 1D (HS)
     Route: 065
  14. DULOXETINE. [Concomitant]
     Active Substance: DULOXETINE
     Indication: PAIN MANAGEMENT
     Dosage: UNK
     Route: 065
  15. BISOCARD [Concomitant]
     Active Substance: BISOPROLOL
     Indication: PRODUCT USED FOR UNKNOWN INDICATION
     Route: 065
  16. ZOLPIDEM TARTRATE. [Suspect]
     Active Substance: ZOLPIDEM TARTRATE
     Indication: SLEEP DISORDER
     Dosage: 10 MG,QD BEFORE BED
     Route: 065
  17. MIANSERIN [Suspect]
     Active Substance: MIANSERIN
     Indication: INSOMNIA
     Dosage: 20 MG, UNK, EVERY 20 DAY
     Route: 065
  18. FLUOXETINE [Suspect]
     Active Substance: FLUOXETINE HYDROCHLORIDE
     Indication: OFF LABEL USE
     Dosage: 40 MG, QD (20 MG,BID)
     Route: 048
     Dates: start: 20171103, end: 20171122
  19. DIAZEPAM. [Suspect]
     Active Substance: DIAZEPAM
     Indication: NIGHTMARE
     Dosage: 10 MG,QD BEFORE BED
     Route: 065
  20. DULOXETINE. [Concomitant]
     Active Substance: DULOXETINE
     Indication: PAIN
     Dosage: 120 MG, UNK
     Route: 065
  21. DIAZEPAM. [Concomitant]
     Active Substance: DIAZEPAM
     Indication: INSOMNIA
     Dosage: 10 MG, QD, USED BEFORE GOING SLEEP
     Route: 065
  22. FLUOXETIN [Concomitant]
     Active Substance: FLUOXETINE HYDROCHLORIDE
     Indication: FIBROMYALGIA
     Dosage: 20 MG, QD, USED IN THE MORNING AND IN THE EVENING A^ 20 MG
     Route: 065
  23. MIANSERIN [Suspect]
     Active Substance: MIANSERIN
     Indication: NIGHTMARE
     Dosage: 20 MG, UNK, USED HALF HOUR BEFORE GOING SLEEP
     Route: 065
  24. FLUOXETINE [Suspect]
     Active Substance: FLUOXETINE HYDROCHLORIDE
     Indication: FIBROMYALGIA
     Dosage: 40 MG, UNK, EVERY 40 DAY
     Route: 065
  25. DULOXETINE. [Concomitant]
     Active Substance: DULOXETINE
     Dosage: 30 MG INTHE MORNING
     Route: 065
  26. ZOFENIL [Concomitant]
     Active Substance: ZOFENOPRIL
     Indication: PRODUCT USED FOR UNKNOWN INDICATION
     Route: 065

REACTIONS (12)
  - Sleep disorder [Recovered/Resolved]
  - Poor quality sleep [Recovered/Resolved]
  - Dry mouth [Recovering/Resolving]
  - Initial insomnia [Recovered/Resolved]
  - Dry mouth [Unknown]
  - Drug interaction [Unknown]
  - Off label use [Recovered/Resolved]
  - Somnolence [Recovering/Resolving]
  - Somnolence [Recovered/Resolved]
  - Blood glucose fluctuation [Recovering/Resolving]
  - Nightmare [Recovered/Resolved]
  - Blood glucose fluctuation [Recovered/Resolved]
